FAERS Safety Report 9760167 (Version 1)
Quarter: 2013Q4

REPORT INFORMATION
  Report Type: Report from Study
  Country: US (occurrence: US)
  Receive Date: 20131216
  Receipt Date: 20131216
  Transmission Date: 20140711
  Serious: Yes (Hospitalization)
  Sender: FDA-Public Use
  Company Number: US-ACTELION-A-US2013-92139

PATIENT
  Age: 55 Week
  Sex: Male

DRUGS (3)
  1. TRACLEER [Suspect]
     Indication: PULMONARY ARTERIAL HYPERTENSION
     Route: 048
  2. ENALAPRIL [Concomitant]
  3. LASIX [Concomitant]

REACTIONS (1)
  - Pulmonary artery therapeutic procedure [Recovering/Resolving]
